FAERS Safety Report 7546321-5 (Version None)
Quarter: 2011Q2

REPORT INFORMATION
  Report Type: 
  Country: None (occurrence: None)
  Receive Date: 20110614
  Receipt Date: 20041123
  Transmission Date: 20111010
  Serious: Yes (Other)
  Sender: FDA-Public Use
  Company Number: PHHO2004BR15679

PATIENT
  Sex: Female

DRUGS (3)
  1. CALCIUM CARBONATE [Concomitant]
  2. GLEEVEC [Suspect]
     Indication: CHRONIC MYELOID LEUKAEMIA
     Dosage: 400 MG, QD
     Route: 048
     Dates: start: 20030620
  3. ALENDRONATE SODIUM [Concomitant]

REACTIONS (4)
  - URINARY TRACT DISORDER [None]
  - URINARY INCONTINENCE [None]
  - VAGINAL HAEMORRHAGE [None]
  - UTERINE CANCER [None]
